FAERS Safety Report 9001887 (Version 1)
Quarter: 2013Q1

REPORT INFORMATION
  Report Type: Spontaneous
  Country: BR (occurrence: BR)
  Receive Date: 20130108
  Receipt Date: 20130108
  Transmission Date: 20140127
  Serious: Yes (Hospitalization)
  Sender: FDA-Public Use
  Company Number: BR-ELI_LILLY_AND_COMPANY-BR201212007756

PATIENT
  Age: 42 Year
  Sex: Male
  Weight: 62 kg

DRUGS (3)
  1. HUMALOG LISPRO [Suspect]
     Indication: DIABETES MELLITUS
     Dosage: 3 IU, OTHER
     Route: 058
     Dates: start: 2005
  2. HUMALOG 25% LISPRO, 75% NPL [Suspect]
     Dosage: UNK, UNKNOWN
     Route: 065
  3. LANTUS [Concomitant]
     Dosage: 3 IU, EACH MORNING
     Route: 065

REACTIONS (3)
  - Road traffic accident [Recovering/Resolving]
  - Drug dispensing error [Unknown]
  - Drug dose omission [Not Recovered/Not Resolved]
